FAERS Safety Report 26177335 (Version 1)
Quarter: 2025Q4

REPORT INFORMATION
  Report Type: Spontaneous
  Country: CN (occurrence: CN)
  Receive Date: 20251219
  Receipt Date: 20251219
  Transmission Date: 20260117
  Serious: Yes (Hospitalization)
  Sender: DIZAL (JIANGSU) PHARMACEUTICAL CO., LTD.
  Company Number: CN-Dizal (Jiangsu) Pharmaceutical Co., Ltd.-2190842

PATIENT
  Age: 71 Year
  Sex: Female

DRUGS (2)
  1. SUNVOZERTINIB [Suspect]
     Active Substance: SUNVOZERTINIB
     Indication: Lung neoplasm malignant
     Route: 061
     Dates: start: 20250222, end: 20251119
  2. SUNVOZERTINIB [Suspect]
     Active Substance: SUNVOZERTINIB
     Indication: Metastases to central nervous system

REACTIONS (3)
  - Furuncle [Recovering/Resolving]
  - Wrong technique in product usage process [Unknown]
  - Rash [Recovering/Resolving]

NARRATIVE: CASE EVENT DATE: 20250222
